FAERS Safety Report 5792475-0 (Version None)
Quarter: 2008Q2

REPORT INFORMATION
  Report Type: 
  Country: None (occurrence: None)
  Receive Date: 20080626
  Receipt Date: 20080616
  Transmission Date: 20081010
  Serious: Yes (Other)
  Sender: FDA-Public Use
  Company Number: US-PFIZER INC-2007036129

PATIENT
  Sex: Female
  Weight: 54.4 kg

DRUGS (2)
  1. BEXTRA [Suspect]
     Indication: BACK PAIN
  2. BEXTRA [Suspect]
     Indication: PAIN IN EXTREMITY

REACTIONS (2)
  - ANXIETY [None]
  - SKIN REACTION [None]
